FAERS Safety Report 5044248-4 (Version None)
Quarter: 2006Q2

REPORT INFORMATION
  Report Type: 
  Country: None (occurrence: None)
  Receive Date: 20060629
  Receipt Date: 20060628
  Transmission Date: 20061013
  Serious: Yes (Death, Hospitalization, Other)
  Sender: FDA-Public Use
  Company Number: SE-2006-006592

PATIENT
  Age: 64 Year
  Sex: Male

DRUGS (8)
  1. CAMPATH [Suspect]
     Indication: CHRONIC LYMPHOCYTIC LEUKAEMIA
     Dosage: 30 MG, 3X/WEEK, INTRAVENOUS
     Route: 042
     Dates: start: 20060101, end: 20060307
  2. DIFLUCAN (FLUCONAZOLE) CAPSULE [Concomitant]
  3. LEVOTHYROXINE SODIUM [Concomitant]
  4. DIGOXIN [Concomitant]
  5. BEHEPAN COATED [Concomitant]
  6. EUSAPRIM FORTE [Concomitant]
  7. ALLOPURINOL [Concomitant]
  8. GEAVIR             (ACICLOVIR) [Concomitant]

REACTIONS (6)
  - CHEMICAL CYSTITIS [None]
  - CYSTITIS HAEMORRHAGIC [None]
  - INFLAMMATION [None]
  - MALIGNANT NEOPLASM PROGRESSION [None]
  - PAIN [None]
  - PULMONARY MYCOSIS [None]
